FAERS Safety Report 5423830-6 (Version None)
Quarter: 2007Q3

REPORT INFORMATION
  Report Type: 
  Country: None (occurrence: None)
  Receive Date: 20070823
  Receipt Date: 20070820
  Transmission Date: 20080115
  Serious: Yes (Hospitalization)
  Sender: FDA-Public Use
  Company Number: JP-BRISTOL-MYERS SQUIBB COMPANY-13880869

PATIENT
  Age: 73 Year
  Sex: Female

DRUGS (17)
  1. TAXOL [Suspect]
     Indication: BREAST CANCER
     Route: 041
     Dates: start: 20060625
  2. GEMZAR [Suspect]
     Indication: BREAST CANCER
     Route: 041
     Dates: start: 20070625
  3. ASPARA-K [Concomitant]
     Route: 048
  4. DIART [Concomitant]
     Route: 048
  5. NIPOLAZINE [Concomitant]
     Route: 048
  6. AZULENE [Concomitant]
     Route: 048
  7. MAGLAX [Concomitant]
     Route: 048
  8. OXYCONTIN [Concomitant]
     Route: 048
     Dates: start: 20070717
  9. LOXOPROFEN [Concomitant]
     Route: 048
     Dates: start: 20070717
  10. MUCOSTA [Concomitant]
     Route: 048
     Dates: start: 20070717
  11. PURSENNID [Concomitant]
     Route: 048
  12. ROHYPNOL [Concomitant]
     Route: 048
     Dates: start: 20070714
  13. RHYTHMY [Concomitant]
     Route: 048
     Dates: start: 20070101
  14. KYTRIL [Concomitant]
     Route: 042
     Dates: start: 20070625
  15. DEXART [Concomitant]
     Route: 042
     Dates: start: 20070625
  16. ZANTAC 150 [Concomitant]
     Route: 042
     Dates: start: 20070625
  17. RESTAMIN [Concomitant]
     Route: 048
     Dates: start: 20070625

REACTIONS (3)
  - ANOREXIA [None]
  - DYSPNOEA [None]
  - MALAISE [None]
